FAERS Safety Report 6971869-1 (Version None)
Quarter: 2010Q3

REPORT INFORMATION
  Report Type: 
  Country: None (occurrence: None)
  Receive Date: 20100908
  Receipt Date: 20100908
  Transmission Date: 20110219
  Serious: No
  Sender: FDA-Public Use
  Company Number: None

PATIENT
  Age: 60 Year
  Sex: Male
  Weight: 81.8 kg

DRUGS (2)
  1. TIZANIDINE HCL [Suspect]
     Indication: MUSCLE SPASMS
     Dosage: 4 MG 3 X DAILY ORAL
     Route: 048
     Dates: start: 20100901
  2. TIZANIDINE HCL [Suspect]
     Indication: MUSCLE SPASMS
     Dosage: 4 MG 3 X DAILY ORAL
     Route: 048
     Dates: start: 20100902

REACTIONS (6)
  - AGGRESSION [None]
  - CONFUSIONAL STATE [None]
  - MOOD ALTERED [None]
  - MUSCLE SPASMS [None]
  - OVERDOSE [None]
  - UNEVALUABLE EVENT [None]
